FAERS Safety Report 17207229 (Version 2)
Quarter: 2020Q1

REPORT INFORMATION
  Report Type: Report from Study
  Country: MX (occurrence: MX)
  Receive Date: 20191227
  Receipt Date: 20200107
  Transmission Date: 20200409
  Serious: Yes (Other)
  Sender: FDA-Public Use
  Company Number: NVSC2019MX012483

PATIENT
  Sex: Female
  Weight: 62 kg

DRUGS (5)
  1. ZANIDIP [Concomitant]
     Active Substance: LERCANIDIPINE HYDROCHLORIDE
     Indication: HYPERTENSION
     Dosage: 1 DF, QD
     Route: 048
  2. TOLTERODINA [Concomitant]
     Indication: INCONTINENCE
     Dosage: 1 DF, QD
     Route: 048
  3. DIOVAN [Suspect]
     Active Substance: VALSARTAN
     Indication: HYPERTENSION
     Dosage: 1 DF(160MG) , QD
     Route: 048
  4. VENALOT [Concomitant]
     Active Substance: COUMARIN\TROXERUTIN
     Indication: ANGIOPATHY
     Dosage: 1 DF, QD
     Route: 048
  5. LYRICA [Concomitant]
     Active Substance: PREGABALIN
     Indication: SLEEP DISORDER
     Dosage: 1 DF, QD
     Route: 048

REACTIONS (3)
  - Hypoacusis [Not Recovered/Not Resolved]
  - Bile duct stone [Not Recovered/Not Resolved]
  - Memory impairment [Unknown]
